FAERS Safety Report 16756967 (Version 13)
Quarter: 2020Q4

REPORT INFORMATION
  Report Type: Other
  Country: CA (occurrence: CA)
  Receive Date: 20190829
  Receipt Date: 20201006
  Transmission Date: 20210113
  Serious: Yes (Other)
  Sender: FDA-Public Use
  Company Number: CA-ROCHE-2297121

PATIENT
  Age: 46 Year
  Sex: Female

DRUGS (9)
  1. BACLOFEN. [Concomitant]
     Active Substance: BACLOFEN
     Indication: MUSCLE SPASMS
     Dosage: 2 PER DAY
  2. MODAFINIL. [Concomitant]
     Active Substance: MODAFINIL
     Indication: FATIGUE
     Dosage: ONGOING-YES
     Dates: start: 201907
  3. ADVIL [Concomitant]
     Active Substance: IBUPROFEN
     Indication: MIGRAINE
  4. MODAFINIL. [Concomitant]
     Active Substance: MODAFINIL
     Indication: DEPRESSION
  5. TECTA [Concomitant]
     Active Substance: PANTOPRAZOLE MAGNESIUM
     Indication: DYSPEPSIA
  6. OCREVUS [Suspect]
     Active Substance: OCRELIZUMAB
     Indication: RELAPSING-REMITTING MULTIPLE SCLEROSIS
     Dosage: 300 MG AT DAY 0 AND 14, THEN 600 MG EVERY 6 MONTH
     Route: 042
     Dates: start: 20190329
  7. GABAPENTIN. [Concomitant]
     Active Substance: GABAPENTIN
     Indication: NEURALGIA
     Dosage: 2 PER DAY
  8. PANTOPRAZOLE [Concomitant]
     Active Substance: PANTOPRAZOLE
     Indication: GASTROOESOPHAGEAL REFLUX DISEASE
     Dosage: 2 PER DAY
  9. ADVIL [Concomitant]
     Active Substance: IBUPROFEN

REACTIONS (23)
  - Psoriasis [Recovered/Resolved]
  - Fungal infection [Recovering/Resolving]
  - Infection [Unknown]
  - Migraine [Not Recovered/Not Resolved]
  - Asthenia [Not Recovered/Not Resolved]
  - Nasopharyngitis [Not Recovered/Not Resolved]
  - Feeling abnormal [Not Recovered/Not Resolved]
  - Lower respiratory tract infection [Recovered/Resolved]
  - Cough [Not Recovered/Not Resolved]
  - Eye disorder [Not Recovered/Not Resolved]
  - Burning sensation [Unknown]
  - Stress [Not Recovered/Not Resolved]
  - Vertigo [Not Recovered/Not Resolved]
  - Headache [Not Recovered/Not Resolved]
  - Insomnia [Unknown]
  - Mobility decreased [Not Recovered/Not Resolved]
  - Rash [Recovering/Resolving]
  - Sinus disorder [Unknown]
  - Pain [Not Recovered/Not Resolved]
  - Infusion related reaction [Recovering/Resolving]
  - Fatigue [Not Recovered/Not Resolved]
  - Depression [Not Recovered/Not Resolved]
  - Hypersomnia [Recovered/Resolved]

NARRATIVE: CASE EVENT DATE: 20190329
